FAERS Safety Report 19249655 (Version 1)
Quarter: 2021Q2

REPORT INFORMATION
  Report Type: Spontaneous
  Country: US (occurrence: US)
  Receive Date: 20210512
  Receipt Date: 20210512
  Transmission Date: 20210717
  Serious: No
  Sender: FDA-Public Use
  Company Number: US-PFIZER INC-2021218176

PATIENT
  Age: 84 Year
  Sex: Male

DRUGS (1)
  1. IBRANCE [Suspect]
     Active Substance: PALBOCICLIB
     Indication: BONE NEOPLASM
     Dosage: 125 MG

REACTIONS (3)
  - Neoplasm progression [Unknown]
  - Laboratory test abnormal [Unknown]
  - Off label use [Unknown]
